FAERS Safety Report 9432776 (Version 2)
Quarter: 2013Q3

REPORT INFORMATION
  Report Type: Spontaneous
  Country: TW (occurrence: TW)
  Receive Date: 20130731
  Receipt Date: 20130806
  Transmission Date: 20140515
  Serious: Yes (Other)
  Sender: FDA-Public Use
  Company Number: TW-PFIZER INC-2013219999

PATIENT
  Age: 8 Decade
  Sex: Female

DRUGS (2)
  1. SUTENT [Suspect]
     Indication: GASTROINTESTINAL STROMAL TUMOUR
     Dosage: 37.5 MG, 1X/DAY
     Route: 048
  2. COUMADIN [Concomitant]
     Indication: ATRIAL FIBRILLATION
     Dosage: 2.5 MG, FROM MONDAY THROUGH FRIDAY
     Route: 048
     Dates: start: 201306

REACTIONS (2)
  - Ear haemorrhage [Recovering/Resolving]
  - International normalised ratio increased [Recovering/Resolving]
